FAERS Safety Report 6892013-5 (Version None)
Quarter: 2010Q3

REPORT INFORMATION
  Report Type: 
  Country: None (occurrence: None)
  Receive Date: 20100731
  Receipt Date: 20071219
  Transmission Date: 20110219
  Serious: No
  Sender: FDA-Public Use
  Company Number: US-PFIZER INC-2007106822

PATIENT
  Sex: Female
  Weight: 50 kg

DRUGS (2)
  1. NORVASC [Suspect]
     Indication: BLOOD PRESSURE
  2. AMLODIPINE [Suspect]
     Indication: BLOOD PRESSURE
     Dates: start: 20070101, end: 20070101

REACTIONS (4)
  - DIZZINESS [None]
  - FATIGUE [None]
  - FEAR [None]
  - INCORRECT DOSE ADMINISTERED [None]
